FAERS Safety Report 11697977 (Version 1)
Quarter: 2015Q4

REPORT INFORMATION
  Report Type: Spontaneous
  Country: US (occurrence: US)
  Receive Date: 20151104
  Receipt Date: 20151104
  Transmission Date: 20160304
  Serious: No
  Sender: FDA-Public Use
  Company Number: US-009507513-1511USA001584

PATIENT

DRUGS (1)
  1. JANUVIA [Suspect]
     Active Substance: SITAGLIPTIN PHOSPHATE
     Route: 048

REACTIONS (7)
  - Musculoskeletal pain [Unknown]
  - Arthralgia [Unknown]
  - Malaise [Unknown]
  - Urine odour abnormal [Unknown]
  - Nervousness [Unknown]
  - Asthenia [Unknown]
  - Back pain [Unknown]
